FAERS Safety Report 7792195-7 (Version None)
Quarter: 2011Q4

REPORT INFORMATION
  Report Type: 
  Country: None (occurrence: None)
  Receive Date: 20111003
  Receipt Date: 20111003
  Transmission Date: 20120403
  Serious: Yes (Hospitalization)
  Sender: FDA-Public Use
  Company Number: None

PATIENT
  Age: 71 Year
  Sex: Male

DRUGS (3)
  1. ESCITALOPRAM [Suspect]
     Indication: AFFECTIVE DISORDER
     Dosage: 20 MG
     Route: 048
  2. VALPROATE SODIUM [Concomitant]
     Indication: BORDERLINE PERSONALITY DISORDER
     Dosage: 500 MG
     Route: 048
  3. ARIPIPRAZOLE [Concomitant]

REACTIONS (2)
  - CONVULSION [None]
  - HYPONATRAEMIA [None]
